FAERS Safety Report 14617370 (Version 2)
Quarter: 2018Q1

REPORT INFORMATION
  Report Type: Report from Study
  Country: JP (occurrence: JP)
  Receive Date: 20180309
  Receipt Date: 20180327
  Transmission Date: 20180509
  Serious: Yes (Hospitalization)
  Sender: FDA-Public Use
  Company Number: JP-JT-EVA201600963KERYXP-002

PATIENT
  Age: 71 Year
  Sex: Female
  Weight: 55 kg

DRUGS (21)
  1. EPADEL-S [Concomitant]
     Active Substance: ICOSAPENT ETHYL
     Dosage: 1800 MG, QD
     Route: 048
     Dates: start: 20160513
  2. NESP [Concomitant]
     Active Substance: DARBEPOETIN ALFA
     Dosage: 30 MICRO-G, UNK
     Route: 042
  3. SINLESTAL [Concomitant]
     Dosage: 500 MG, QD
     Route: 048
  4. GASMOTIN [Concomitant]
     Active Substance: MOSAPRIDE CITRATE
     Dosage: 15 MG, QD
     Route: 048
  5. NESP [Concomitant]
     Active Substance: DARBEPOETIN ALFA
     Indication: NEPHROGENIC ANAEMIA
     Dosage: 10 MICRO-G, UNK
     Route: 042
  6. PREDNISOLONE. [Concomitant]
     Active Substance: PREDNISOLONE
     Indication: GLOMERULONEPHRITIS CHRONIC
     Dosage: 2 MG, QD
     Route: 048
  7. NESP [Concomitant]
     Active Substance: DARBEPOETIN ALFA
     Dosage: 15 MICRO-G, UNK
     Route: 042
  8. NESP [Concomitant]
     Active Substance: DARBEPOETIN ALFA
     Dosage: 30 MICRO-G, UNK
     Route: 042
  9. CALCITRIOL. [Concomitant]
     Active Substance: CALCITRIOL
     Indication: HYPERPARATHYROIDISM SECONDARY
     Dosage: 0.5 MICRO-G, QD
     Route: 048
  10. AMLODIN [Concomitant]
     Active Substance: AMLODIPINE BESYLATE
     Dosage: 2.5 MG, QD
     Route: 048
  11. NEXIUM [Concomitant]
     Active Substance: ESOMEPRAZOLE MAGNESIUM
     Indication: HYPERCHLORHYDRIA
     Dosage: 20 MG, QD
     Route: 048
     Dates: start: 20150424
  12. NU-LOTAN [Concomitant]
     Active Substance: LOSARTAN POTASSIUM
     Dosage: 100 MG, QD
     Route: 048
     Dates: start: 20160523
  13. NESP [Concomitant]
     Active Substance: DARBEPOETIN ALFA
     Dosage: 15 MICRO-G, UNK
     Route: 042
  14. NESP [Concomitant]
     Active Substance: DARBEPOETIN ALFA
     Dosage: 20 MICRO-G, UNK
     Route: 042
  15. NESP [Concomitant]
     Active Substance: DARBEPOETIN ALFA
     Dosage: 30 MICRO-G, UNK
     Route: 042
  16. PLAVIX [Concomitant]
     Active Substance: CLOPIDOGREL BISULFATE
     Dosage: 75 MG, QD
     Route: 048
  17. ZETIA [Concomitant]
     Active Substance: EZETIMIBE
     Dosage: 10 MG, QD
     Route: 048
  18. RIONA [Suspect]
     Active Substance: FERRIC CITRATE ANHYDROUS
     Indication: HYPERPHOSPHATAEMIA
     Dosage: 750 MG, QD
     Route: 048
     Dates: start: 20160108, end: 20170603
  19. NESP [Concomitant]
     Active Substance: DARBEPOETIN ALFA
     Dosage: 20 MICRO-G, UNK
     Route: 042
  20. NESP [Concomitant]
     Active Substance: DARBEPOETIN ALFA
     Dosage: 30 MICRO-G, UNK
     Route: 042
  21. TALION                             /01587402/ [Concomitant]
     Active Substance: BEPOTASTINE
     Dosage: 20 MG, QD
     Route: 048
     Dates: end: 20160410

REACTIONS (1)
  - Cardiac failure congestive [Recovered/Resolved]

NARRATIVE: CASE EVENT DATE: 20170604
